FAERS Safety Report 22524719 (Version 1)
Quarter: 2023Q2

REPORT INFORMATION
  Report Type: Spontaneous
  Country: RU (occurrence: None)
  Receive Date: 20230606
  Receipt Date: 20230606
  Transmission Date: 20230721
  Serious: Yes (Other)
  Sender: FDA-Public Use
  Company Number: 2023A126711

PATIENT
  Sex: Male

DRUGS (3)
  1. PULMICORT TURBUHALER [Suspect]
     Active Substance: BUDESONIDE
     Indication: Tracheitis
     Route: 055
  2. FENOTEROL HYDROBROMIDE\IPRATROPIUM BROMIDE [Concomitant]
     Active Substance: FENOTEROL HYDROBROMIDE\IPRATROPIUM BROMIDE
  3. PREDNISOLONE [Concomitant]
     Active Substance: PREDNISOLONE

REACTIONS (3)
  - Asphyxia [Unknown]
  - Drug ineffective for unapproved indication [Unknown]
  - Off label use [Unknown]
